FAERS Safety Report 5915538-5 (Version None)
Quarter: 2008Q4

REPORT INFORMATION
  Report Type: 
  Country: None (occurrence: None)
  Receive Date: 20081010
  Receipt Date: 20080814
  Transmission Date: 20090506
  Serious: No
  Sender: FDA-Public Use
  Company Number: A0736727A

PATIENT
  Age: 57 Year
  Sex: Female
  Weight: 103 kg

DRUGS (4)
  1. TYKERB [Suspect]
     Indication: BREAST CANCER
     Dosage: 1000MG PER DAY
     Route: 048
     Dates: start: 20080111
  2. COUMADIN [Concomitant]
  3. FEMARA [Concomitant]
  4. HYDROCODONE BITARTRATE [Concomitant]

REACTIONS (3)
  - DIARRHOEA [None]
  - MUSCLE SPASMS [None]
  - PAIN IN EXTREMITY [None]
